FAERS Safety Report 4713478-0 (Version None)
Quarter: 2005Q3

REPORT INFORMATION
  Report Type: 
  Country: None (occurrence: None)
  Receive Date: 20050711
  Receipt Date: 20050629
  Transmission Date: 20060218
  Serious: Yes (Other)
  Sender: FDA-Public Use
  Company Number: 805#1#2005-00050

PATIENT
  Age: 69 Year
  Sex: Female

DRUGS (3)
  1. ALPROSTADIL [Suspect]
     Indication: ATHEROSCLEROSIS OBLITERANS
     Dosage: 120 MCG (60MCG 2 IN 1 DAY (S)) INTRAVENOUS DRIP
     Route: 041
     Dates: start: 20050615, end: 20050616
  2. SODIUM BICARBONATE IN PLASTIC CONTAINER [Concomitant]
  3. EXTRACT-FROM-INFLAMMATORY-RABBIT-SKIN-INOCULATED-BY VACCINIA-VIRUS [Concomitant]

REACTIONS (3)
  - HAEMOGLOBIN DECREASED [None]
  - MELAENA [None]
  - RECTAL ULCER HAEMORRHAGE [None]
